FAERS Safety Report 4523669-X (Version None)
Quarter: 2004Q4

REPORT INFORMATION
  Report Type: 
  Country: None (occurrence: None)
  Receive Date: 20041210
  Receipt Date: 20031009
  Transmission Date: 20050328
  Serious: Yes (Hospitalization)
  Sender: FDA-Public Use
  Company Number: US-GLAXOSMITHKLINE-A0414227G

PATIENT
  Age: 36 Year
  Sex: Female

DRUGS (5)
  1. ENGERIX-B [Suspect]
     Indication: PROPHYLAXIS
     Route: 030
     Dates: start: 20030729, end: 20030729
  2. HAVRIX [Suspect]
     Indication: PROPHYLAXIS
     Route: 030
     Dates: start: 20030529, end: 20030529
  3. ELAVIL [Suspect]
  4. PAXIL [Suspect]
     Indication: DEPRESSION
     Dosage: 30MG PER DAY
     Route: 048
     Dates: start: 20030901, end: 20031006
  5. FLEXERIL [Suspect]

REACTIONS (3)
  - DEPRESSION [None]
  - MULTIPLE DRUG OVERDOSE INTENTIONAL [None]
  - SUICIDE ATTEMPT [None]
